FAERS Safety Report 21264404 (Version 1)
Quarter: 2022Q3

REPORT INFORMATION
  Report Type: Spontaneous
  Country: GR (occurrence: GR)
  Receive Date: 20220829
  Receipt Date: 20220829
  Transmission Date: 20221027
  Serious: Yes (Other)
  Sender: FDA-Public Use
  Company Number: GR-AMGEN-GRCSP2022146852

PATIENT
  Age: 59 Year
  Sex: Male

DRUGS (3)
  1. XGEVA [Suspect]
     Active Substance: DENOSUMAB
     Indication: Renal cell carcinoma
     Route: 065
  2. IPILIMUMAB [Concomitant]
     Active Substance: IPILIMUMAB
     Indication: Renal cell carcinoma
  3. NIVOLUMAB [Concomitant]
     Active Substance: NIVOLUMAB
     Indication: Renal cell carcinoma

REACTIONS (5)
  - Metastatic renal cell carcinoma [Unknown]
  - Immune-mediated nephritis [Recovered/Resolved]
  - Metastases to liver [Unknown]
  - Metastases to tonsils [Unknown]
  - Therapy partial responder [Unknown]
